FAERS Safety Report 16046824 (Version 4)
Quarter: 2019Q3

REPORT INFORMATION
  Report Type: Spontaneous
  Country: US (occurrence: US)
  Receive Date: 20190307
  Receipt Date: 20190718
  Transmission Date: 20191004
  Serious: Yes (Hospitalization)
  Sender: FDA-Public Use
  Company Number: US-PFIZER INC-2019097998

PATIENT
  Age: 57 Year
  Sex: Female

DRUGS (3)
  1. LYRICA [Suspect]
     Active Substance: PREGABALIN
     Indication: NERVE INJURY
  2. LYRICA [Suspect]
     Active Substance: PREGABALIN
     Indication: SPINAL OPERATION
     Dosage: 150 MG, TWICE A DAY (BID)
  3. LYRICA [Suspect]
     Active Substance: PREGABALIN
     Indication: NEURALGIA

REACTIONS (3)
  - Malaise [Recovered/Resolved]
  - Gait disturbance [Recovered/Resolved]
  - Loss of personal independence in daily activities [Recovered/Resolved]
